FAERS Safety Report 12410723 (Version 2)
Quarter: 2016Q2

REPORT INFORMATION
  Report Type: Spontaneous
  Country: CA (occurrence: CA)
  Receive Date: 20160527
  Receipt Date: 20160626
  Transmission Date: 20160815
  Serious: Yes (Other)
  Sender: FDA-Public Use
  Company Number: CA-BAYER-2016-097499

PATIENT
  Age: 67 Year
  Sex: Female

DRUGS (1)
  1. RESTORALAX [Suspect]
     Active Substance: POLYETHYLENE GLYCOL 3350
     Indication: CONSTIPATION

REACTIONS (5)
  - Abdominal pain lower [None]
  - Abnormal faeces [None]
  - Dysgeusia [None]
  - Absent bowel movement [None]
  - Abdominal discomfort [None]
